FAERS Safety Report 7798529-1 (Version None)
Quarter: 2011Q4

REPORT INFORMATION
  Report Type: 
  Country: None (occurrence: None)
  Receive Date: 20111005
  Receipt Date: 20110926
  Transmission Date: 20120403
  Serious: Yes (Other)
  Sender: FDA-Public Use
  Company Number: US-ALLERGAN-1112761US

PATIENT
  Age: 54 Year
  Sex: Female

DRUGS (1)
  1. LUMIGAN [Suspect]
     Indication: GLAUCOMA
     Dosage: 2 GTT, QD
     Route: 047
     Dates: start: 20100309, end: 20110408

REACTIONS (3)
  - VISUAL ACUITY REDUCED [None]
  - RETINAL OEDEMA [None]
  - DRY EYE [None]
